FAERS Safety Report 24232965 (Version 1)
Quarter: 2024Q3

REPORT INFORMATION
  Report Type: Spontaneous
  Country: CA (occurrence: CA)
  Receive Date: 20240821
  Receipt Date: 20240821
  Transmission Date: 20241016
  Serious: Yes (Hospitalization, Other)
  Sender: BAXTER
  Company Number: CA-BAXTER-2024BAX023093

PATIENT
  Age: 66 Year
  Sex: Male
  Weight: 110 kg

DRUGS (21)
  1. CYCLOPHOSPHAMIDE [Suspect]
     Active Substance: CYCLOPHOSPHAMIDE
     Indication: Mantle cell lymphoma refractory
     Dosage: UNK (DOSAGE FORM: NOT SPECIFIED)
     Route: 065
  2. FLUDARABINE [Suspect]
     Active Substance: FLUDARABINE PHOSPHATE
     Indication: Mantle cell lymphoma refractory
     Dosage: UNK (DOSAGE FORM: NOT SPECIFIED)
     Route: 065
  3. TECARTUS [Suspect]
     Active Substance: BREXUCABTAGENE AUTOLEUCEL
     Indication: Mantle cell lymphoma refractory
     Dosage: UNK, (DOSAGE FORM: SUSPENSION INTRAVENOUS)
     Route: 065
  4. ALLOPURINOL [Concomitant]
     Active Substance: ALLOPURINOL
     Dosage: UNK
     Route: 065
  5. AMLODIPINE [Concomitant]
     Active Substance: AMLODIPINE BESYLATE
     Dosage: UNK
     Route: 065
  6. APIXABAN [Concomitant]
     Active Substance: APIXABAN
     Dosage: UNK
     Route: 065
  7. DIPHENHYDRAMINE [Concomitant]
     Active Substance: DIPHENHYDRAMINE
     Dosage: UNK (DOSAGE FORM: NOT SPECIFIED)
     Route: 065
  8. HUMALOG [Concomitant]
     Active Substance: INSULIN LISPRO
     Dosage: UNK
     Route: 065
  9. INSULIN GLARGINE [Concomitant]
     Active Substance: INSULIN GLARGINE
     Dosage: UNK (DOSAGE FORM: SOLUTION SUBCUTANEOUS)
     Route: 065
  10. LORAZEPAM [Concomitant]
     Active Substance: LORAZEPAM
     Dosage: UNK (DOSAGE FORM: NOT SPECIFIED)
     Route: 065
  11. MAGNESIUM OXIDE [Concomitant]
     Active Substance: MAGNESIUM OXIDE
     Dosage: UNK (DOSAGE FORM: NOT SPECIFIED)
     Route: 065
  12. METFORMIN [Concomitant]
     Active Substance: METFORMIN HYDROCHLORIDE
     Dosage: UNK
     Route: 065
  13. METOCLOPRAMIDE [Concomitant]
     Active Substance: METOCLOPRAMIDE
     Dosage: UNK (DOSAGE FORM: NOT SPECIFIED)
     Route: 065
  14. OLANZAPINE [Concomitant]
     Active Substance: OLANZAPINE
     Dosage: UNK (DOSAGE FORM: NOT SPECIFIED)
     Route: 065
  15. PANTOPRAZOLE [Concomitant]
     Active Substance: PANTOPRAZOLE
     Dosage: UNK (DOSAGE FORM: NOT SPECIFIED)
     Route: 065
  16. PROCHLORPERAZINE [Concomitant]
     Active Substance: PROCHLORPERAZINE
     Dosage: UNK (DOSAGE FORM: NOT SPECIFIED)
     Route: 065
  17. VALACYCLOVIR [Concomitant]
     Active Substance: VALACYCLOVIR HYDROCHLORIDE
     Dosage: UNK (DOSAGE FORM: NOT SPECIFIED)
     Route: 065
  18. VITAMIN B12 [Concomitant]
     Active Substance: CYANOCOBALAMIN
     Dosage: UNK (DOSAGE FORM: NOT SPECIFIED)
     Route: 065
  19. VITAMIN D [Concomitant]
     Active Substance: VITAMIN D NOS
     Dosage: UNK (DOSAGE FORM: NOT SPECIFIED)
     Route: 065
  20. ONDANSETRON [Concomitant]
     Active Substance: ONDANSETRON
     Dosage: UNK (DOSAGE FORM: NOT SPECIFIED)
     Route: 065
  21. ACETAMINOPHEN [Concomitant]
     Active Substance: ACETAMINOPHEN
     Dosage: UNK (DOSAGE FORM: NOT SPECIFIED)
     Route: 065

REACTIONS (2)
  - Cytokine release syndrome [Recovered/Resolved]
  - Febrile neutropenia [Recovered/Resolved]
